FAERS Safety Report 8775228 (Version 1)
Quarter: 2012Q4

REPORT INFORMATION
  Report Type: Report from Study
  Country: US (occurrence: US)
  Receive Date: 20120910
  Receipt Date: 20120910
  Transmission Date: 20130627
  Serious: No
  Sender: FDA-Public Use
  Company Number: US-009507513-1208USA011631

PATIENT

DRUGS (2)
  1. REBETOL [Suspect]
     Indication: HEPATITIS C
     Dosage: 6 DF, qd
     Route: 048
     Dates: start: 20120702, end: 20120730
  2. GS-5885 [Suspect]
     Indication: HEPATITIS C
     Dosage: 3 DF, qd
     Route: 048
     Dates: start: 20120702, end: 20120730

REACTIONS (1)
  - Overdose [Unknown]
